FAERS Safety Report 16869972 (Version 3)
Quarter: 2019Q4

REPORT INFORMATION
  Report Type: Spontaneous
  Country: US (occurrence: US)
  Receive Date: 20190930
  Receipt Date: 20191030
  Transmission Date: 20200122
  Serious: Yes (Other)
  Sender: FDA-Public Use
  Company Number: US-ABBVIE-19K-163-2939330-00

PATIENT
  Sex: Female

DRUGS (3)
  1. ORILISSA [Suspect]
     Active Substance: ELAGOLIX SODIUM
     Indication: HORMONE LEVEL ABNORMAL
  2. ORILISSA [Suspect]
     Active Substance: ELAGOLIX SODIUM
     Indication: CHEMICAL POISONING
  3. ORILISSA [Suspect]
     Active Substance: ELAGOLIX SODIUM
     Indication: ENDOMETRIOSIS
     Route: 048

REACTIONS (5)
  - Live birth [Unknown]
  - Emotional distress [Unknown]
  - Intestinal operation [Unknown]
  - Loss of libido [Unknown]
  - Exposure during pregnancy [Unknown]
